FAERS Safety Report 7677137-7 (Version None)
Quarter: 2011Q3

REPORT INFORMATION
  Report Type: 
  Country: None (occurrence: None)
  Receive Date: 20110808
  Receipt Date: 20110726
  Transmission Date: 20111222
  Serious: Yes (Hospitalization)
  Sender: FDA-Public Use
  Company Number: 1000022588

PATIENT
  Age: 83 Year
  Sex: Male

DRUGS (5)
  1. ZOLPIDEM TARTRATE [Concomitant]
  2. MEMANTINE [Suspect]
     Indication: DEMENTIA
     Dosage: 5 MG (5 MG, 1 IN 1 D), ORAL
     Route: 048
     Dates: start: 20110620
  3. ALLOPURINOL [Concomitant]
  4. ARICEPT [Concomitant]
  5. HALOPERIDOL [Concomitant]

REACTIONS (2)
  - DEHYDRATION [None]
  - PYREXIA [None]
